FAERS Safety Report 5308068-5 (Version None)
Quarter: 2007Q1

REPORT INFORMATION
  Report Type: 
  Country: None (occurrence: None)
  Receive Date: 20070201
  Receipt Date: 20061005
  Transmission Date: 20070707
  Serious: Yes (Hospitalization)
  Sender: FDA-Public Use
  Company Number: 2006PV022561

PATIENT
  Age: 40 Year
  Sex: Female
  Weight: 105.2345 kg

DRUGS (2)
  1. BYETTA [Suspect]
     Indication: DIABETES MELLITUS NON-INSULIN-DEPENDENT
     Dosage: 5 MCG;BID;SC
     Route: 058
     Dates: start: 20060601, end: 20060720
  2. GLUVOVANCE [Concomitant]

REACTIONS (1)
  - HYPERSENSITIVITY [None]
